FAERS Safety Report 19817946 (Version 1)
Quarter: 2021Q3

REPORT INFORMATION
  Report Type: Spontaneous
  Country: CN (occurrence: CN)
  Receive Date: 20210910
  Receipt Date: 20210910
  Transmission Date: 20211014
  Serious: Yes (Death, Hospitalization)
  Sender: FDA-Public Use
  Company Number: CN-BAXTER-2021BAX028017

PATIENT
  Age: 58 Year
  Sex: Male
  Weight: 52 kg

DRUGS (6)
  1. 0.9% SODIUM CHLORIDE INJECTION [Suspect]
     Active Substance: SODIUM CHLORIDE
     Indication: MEDICATION DILUTION
     Dosage: CYCLOPHOSPHAMIDE 0.92G + 0.9% SODIUM CHLORIDE 500 ML
     Route: 041
     Dates: start: 20210809, end: 20210809
  2. 0.9% SODIUM CHLORIDE INJECTION [Suspect]
     Active Substance: SODIUM CHLORIDE
     Dosage: VINCRISTINE SULFATE 2 MG + 0.9% SODIUM CHLORIDE 100 ML
     Route: 041
     Dates: start: 20210809, end: 20210809
  3. VINCRISTINE SULPHATE [Suspect]
     Active Substance: VINCRISTINE SULFATE
     Indication: ACUTE LYMPHOCYTIC LEUKAEMIA
     Dosage: VINCRISTINE SULFATE 2 MG + 0.9% SODIUM CHLORIDE 100 ML
     Route: 041
     Dates: start: 20210809, end: 20210809
  4. ENDOXAN [Suspect]
     Active Substance: CYCLOPHOSPHAMIDE
     Indication: ACUTE LYMPHOCYTIC LEUKAEMIA
     Dosage: CYCLOPHOSPHAMIDE 0.92 G + 0.9% SODIUM CHLORIDE 500 ML
     Route: 041
     Dates: start: 20210809, end: 20210809
  5. 0.9% SODIUM CHLORIDE INJECTION [Suspect]
     Active Substance: SODIUM CHLORIDE
     Dosage: IDARUBICIN HYDROCHLORIDE 15 MG + 0.9% SODIUM CHLORIDE 250 ML
     Route: 041
     Dates: start: 20210809, end: 20210811
  6. IDARUBICIN HYDROCHLORIDE. [Suspect]
     Active Substance: IDARUBICIN HYDROCHLORIDE
     Indication: ACUTE LYMPHOCYTIC LEUKAEMIA
     Dosage: IDARUBICIN HYDROCHLORIDE 15 MG + 0.9% SODIUM CHLORIDE 250 ML
     Route: 041
     Dates: start: 20210809, end: 20210811

REACTIONS (2)
  - Myelosuppression [Recovered/Resolved with Sequelae]
  - Condition aggravated [Fatal]

NARRATIVE: CASE EVENT DATE: 20210818
